FAERS Safety Report 15878347 (Version 2)
Quarter: 2019Q1

REPORT INFORMATION
  Report Type: Spontaneous
  Country: NL (occurrence: NL)
  Receive Date: 20190128
  Receipt Date: 20190225
  Transmission Date: 20190417
  Serious: Yes (Other)
  Sender: FDA-Public Use
  Company Number: NL-AUROBINDO-AUR-APL-2019-002392

PATIENT
  Sex: Female
  Weight: 78 kg

DRUGS (1)
  1. VENLAFAXINE [Suspect]
     Active Substance: VENLAFAXINE HYDROCHLORIDE
     Indication: DEPRESSION
     Dosage: 150 MILLIGRAM, DAILY
     Route: 048
     Dates: start: 20181201, end: 20181206

REACTIONS (2)
  - Suicidal ideation [Recovered/Resolved]
  - Therapeutic response unexpected [Recovered/Resolved]
